FAERS Safety Report 18307094 (Version 2)
Quarter: 2021Q3

REPORT INFORMATION
  Report Type: Spontaneous
  Country: US (occurrence: US)
  Receive Date: 20200924
  Receipt Date: 20210716
  Transmission Date: 20211014
  Serious: Yes (Death)
  Sender: FDA-Public Use
  Company Number: US-STRIDES ARCOLAB LIMITED-2020SP011380

PATIENT
  Age: 36 Year
  Sex: Female

DRUGS (2)
  1. RANITIDINE. [Suspect]
     Active Substance: RANITIDINE
     Indication: DYSPEPSIA
     Dosage: UNK, (ZANTAC); DAILY
     Route: 048
     Dates: start: 201308, end: 201808
  2. RANITIDINE. [Suspect]
     Active Substance: RANITIDINE
     Dosage: UNK, (RANITIDINE); DAILY
     Route: 048
     Dates: start: 201308, end: 201808

REACTIONS (1)
  - Oesophageal carcinoma [Fatal]

NARRATIVE: CASE EVENT DATE: 20181011
